FAERS Safety Report 19614609 (Version 1)
Quarter: 2021Q3

REPORT INFORMATION
  Report Type: Spontaneous
  Country: US (occurrence: US)
  Receive Date: 20210727
  Receipt Date: 20210727
  Transmission Date: 20211014
  Serious: Yes (Other)
  Sender: FDA-Public Use
  Company Number: None

PATIENT
  Age: 52 Year
  Sex: Male

DRUGS (12)
  1. PRAZOSIN HCL [Concomitant]
     Active Substance: PRAZOSIN HYDROCHLORIDE
     Dates: start: 20210614
  2. LOMOTIL [Concomitant]
     Active Substance: ATROPINE SULFATE\DIPHENOXYLATE HYDROCHLORIDE
     Dates: start: 20210614
  3. LIOTHYRONINE [Concomitant]
     Active Substance: LIOTHYRONINE
     Dates: start: 20210614
  4. LISINOPRIL. [Concomitant]
     Active Substance: LISINOPRIL
     Dates: start: 20210614
  5. LITHIUM. [Concomitant]
     Active Substance: LITHIUM
     Dates: start: 20210614
  6. POT CHLORIDE [Concomitant]
     Active Substance: POTASSIUM CHLORIDE
     Dates: start: 20210614
  7. SPRAVATO [Suspect]
     Active Substance: ESKETAMINE
     Indication: MAJOR DEPRESSION
     Dosage: ?          OTHER FREQUENCY:2 TIMES A WEEK;OTHER ROUTE:INTRANASALLY?
     Dates: start: 20210630
  8. XANAX [Concomitant]
     Active Substance: ALPRAZOLAM
     Dates: start: 20210614
  9. SEROQUEL [Concomitant]
     Active Substance: QUETIAPINE FUMARATE
     Dates: start: 20210614
  10. PRISTIQ EXTENDED?RELEASE [Concomitant]
     Active Substance: DESVENLAFAXINE SUCCINATE
     Dates: start: 20210614
  11. TESTOST [Concomitant]
     Dates: start: 20210614
  12. CREON [Concomitant]
     Active Substance: PANCRELIPASE AMYLASE\PANCRELIPASE LIPASE\PANCRELIPASE PROTEASE
     Dates: start: 20210614

REACTIONS (1)
  - Hip surgery [None]

NARRATIVE: CASE EVENT DATE: 20210723
